FAERS Safety Report 23375029 (Version 2)
Quarter: 2024Q1

REPORT INFORMATION
  Report Type: Spontaneous
  Country: US (occurrence: US)
  Receive Date: 20240106
  Receipt Date: 20240209
  Transmission Date: 20240410
  Serious: No
  Sender: FDA-Public Use
  Company Number: US-HALEON-USCH2023067644

PATIENT
  Age: 67 Year
  Sex: Female

DRUGS (1)
  1. ABREVA [Suspect]
     Active Substance: DOCOSANOL
     Indication: Oral herpes
     Dosage: UNK
     Dates: start: 20231229

REACTIONS (3)
  - Wrong technique in product usage process [Unknown]
  - Product packaging difficult to open [Unknown]
  - Product complaint [Unknown]

NARRATIVE: CASE EVENT DATE: 20231229
